FAERS Safety Report 4471319-3 (Version None)
Quarter: 2004Q4

REPORT INFORMATION
  Report Type: 
  Country: None (occurrence: None)
  Receive Date: 20041011
  Receipt Date: 20040929
  Transmission Date: 20050328
  Serious: Yes (Other)
  Sender: FDA-Public Use
  Company Number: US-MERCK-0409USA02726

PATIENT
  Age: 65 Year
  Sex: Female
  Weight: 114 kg

DRUGS (18)
  1. TYLENOL [Concomitant]
     Route: 065
  2. DARVOCET-N 100 [Concomitant]
     Route: 065
  3. DUONEB [Concomitant]
     Route: 055
  4. LIPITOR [Concomitant]
     Route: 065
  5. PULMICORT [Concomitant]
     Route: 065
  6. CALCIUM (UNSPECIFIED) [Concomitant]
     Route: 065
  7. CIPRO [Concomitant]
     Route: 065
  8. ENALAPRIL MALEATE [Concomitant]
     Route: 065
  9. LASIX [Concomitant]
     Route: 065
  10. LANTUS [Concomitant]
     Route: 065
  11. HUMALOG [Concomitant]
     Route: 065
  12. CLARITIN [Concomitant]
     Route: 065
  13. METFORMIN [Concomitant]
     Route: 065
  14. OXYGEN [Concomitant]
     Route: 065
  15. PAXIL [Concomitant]
     Route: 065
  16. PREDNISONE [Concomitant]
     Route: 065
  17. VIOXX [Suspect]
     Indication: RHEUMATOID ARTHRITIS
     Route: 048
     Dates: start: 20040922, end: 20040926
  18. ACCOLATE [Concomitant]
     Route: 065

REACTIONS (1)
  - WEIGHT INCREASED [None]
